FAERS Safety Report 19241882 (Version 2)
Quarter: 2021Q2

REPORT INFORMATION
  Report Type: Spontaneous
  Country: TR (occurrence: TR)
  Receive Date: 20210511
  Receipt Date: 20210526
  Transmission Date: 20210717
  Serious: Yes (Death, Other)
  Sender: FDA-Public Use
  Company Number: TR-PFIZER INC-2021486799

PATIENT
  Age: 56 Year
  Sex: Female

DRUGS (6)
  1. DIPHENHYDRAMINE. [Concomitant]
     Active Substance: DIPHENHYDRAMINE
     Indication: METASTASES TO LIVER
  2. PACLITAXEL. [Suspect]
     Active Substance: PACLITAXEL
     Indication: BREAST CANCER METASTATIC
     Dosage: 135 MG/M2 (TOTAL 190 MG) VIA CONTINUOUS INFUSION FOR 24 HOURS
  3. DIPHENHYDRAMINE. [Concomitant]
     Active Substance: DIPHENHYDRAMINE
     Indication: BREAST CANCER METASTATIC
     Dosage: 50 MG
     Route: 042
  4. PACLITAXEL. [Suspect]
     Active Substance: PACLITAXEL
     Indication: METASTASES TO LIVER
  5. DEXAMETHASONE. [Concomitant]
     Active Substance: DEXAMETHASONE
     Indication: BREAST CANCER METASTATIC
     Dosage: 16 MG, DAILY
     Route: 048
  6. DEXAMETHASONE. [Concomitant]
     Active Substance: DEXAMETHASONE
     Indication: METASTASES TO LIVER

REACTIONS (7)
  - Confusional state [Unknown]
  - Orthopnoea [Unknown]
  - Cardiac arrest [Fatal]
  - Oliguria [Unknown]
  - Disseminated intravascular coagulation [Unknown]
  - Tumour lysis syndrome [Fatal]
  - Pulmonary oedema [Unknown]
